FAERS Safety Report 24539910 (Version 1)
Quarter: 2024Q4

REPORT INFORMATION
  Report Type: Spontaneous
  Country: US (occurrence: US)
  Receive Date: 20241023
  Receipt Date: 20241023
  Transmission Date: 20250115
  Serious: Yes (Death, Other)
  Sender: AMGEN
  Company Number: US-AMGEN-USASP2024209400

PATIENT

DRUGS (1)
  1. PREDNISONE [Suspect]
     Active Substance: PREDNISONE
     Indication: Immunosuppressant drug therapy
     Dosage: UNK
     Route: 065

REACTIONS (16)
  - Death [Fatal]
  - Enterococcal bacteraemia [Unknown]
  - Transplant rejection [Unknown]
  - Acute kidney injury [Unknown]
  - Pyelonephritis [Unknown]
  - Klebsiella bacteraemia [Unknown]
  - Morganella test positive [Unknown]
  - Candida test positive [Unknown]
  - Escherichia test positive [Unknown]
  - Urinary tract infection [Unknown]
  - Cystitis [Unknown]
  - Gardnerella test positive [Unknown]
  - Pseudomonas test positive [Unknown]
  - Citrobacter test positive [Unknown]
  - Klebsiella test positive [Unknown]
  - Off label use [Unknown]
